FAERS Safety Report 10976694 (Version 2)
Quarter: 2015Q2

REPORT INFORMATION
  Report Type: Spontaneous
  Country: US (occurrence: US)
  Receive Date: 20150401
  Receipt Date: 20150506
  Transmission Date: 20150821
  Serious: Yes (Death, Hospitalization)
  Sender: FDA-Public Use
  Company Number: US-UNITED THERAPEUTICS-UNT-2015-003203

PATIENT
  Sex: Male

DRUGS (1)
  1. REMODULIN [Suspect]
     Active Substance: TREPROSTINIL
     Indication: PULMONARY ARTERIAL HYPERTENSION
     Dosage: 0.0317 ?G/KG, CONTINUING
     Route: 041
     Dates: start: 20141104

REACTIONS (3)
  - Pulmonary hypertension [Fatal]
  - Blood pressure decreased [Unknown]
  - Scleroderma [Fatal]

NARRATIVE: CASE EVENT DATE: 20150314
